FAERS Safety Report 17830228 (Version 2)
Quarter: 2020Q2

REPORT INFORMATION
  Report Type: Report from Study
  Country: HN (occurrence: HN)
  Receive Date: 20200527
  Receipt Date: 20200629
  Transmission Date: 20200714
  Serious: Yes (Hospitalization, Other)
  Sender: FDA-Public Use
  Company Number: NVSC2020HN144050

PATIENT
  Age: 71 Year
  Sex: Female

DRUGS (2)
  1. DIOVAN [Suspect]
     Active Substance: VALSARTAN
     Indication: BLOOD PRESSURE ABNORMAL
     Dosage: 160 MG (STARTED SIX YEARS AGO)
     Route: 065
     Dates: end: 20200621
  2. DIOVAN [Suspect]
     Active Substance: VALSARTAN
     Indication: CARDIAC FAILURE

REACTIONS (3)
  - Cardiac failure [Not Recovered/Not Resolved]
  - Pulmonary oedema [Unknown]
  - Cardiomegaly [Not Recovered/Not Resolved]
